FAERS Safety Report 6134923-2 (Version None)
Quarter: 2009Q1

REPORT INFORMATION
  Report Type: 
  Country: None (occurrence: None)
  Receive Date: 20090327
  Receipt Date: 20090316
  Transmission Date: 20090719
  Serious: Yes (Death, Other)
  Sender: FDA-Public Use
  Company Number: JP-PFIZER INC-2009180948

PATIENT

DRUGS (2)
  1. DALACIN [Suspect]
     Indication: PNEUMONIA ASPIRATION
     Dosage: UNK
     Route: 042
     Dates: start: 20090306, end: 20090308
  2. TARGOCID [Suspect]
     Indication: PNEUMONIA ASPIRATION
     Route: 042
     Dates: start: 20090306, end: 20090308

REACTIONS (2)
  - DEATH [None]
  - PLATELET COUNT DECREASED [None]
